APPROVED DRUG PRODUCT: HEPARIN SODIUM 2,000 UNITS IN SODIUM CHLORIDE 0.9% IN PLASTIC CONTAINER
Active Ingredient: HEPARIN SODIUM
Strength: 200 UNITS/100ML
Dosage Form/Route: INJECTABLE;INJECTION
Application: N018916 | Product #011 | TE Code: AP
Applicant: HOSPIRA INC
Approved: Jun 23, 1989 | RLD: Yes | RS: Yes | Type: RX